FAERS Safety Report 5413605-6 (Version None)
Quarter: 2007Q3

REPORT INFORMATION
  Report Type: 
  Country: None (occurrence: None)
  Receive Date: 20070814
  Receipt Date: 20060803
  Transmission Date: 20080115
  Serious: No
  Sender: FDA-Public Use
  Company Number: US-BRISTOL-MYERS SQUIBB COMPANY-13464268

PATIENT
  Age: 59 Year
  Sex: Female
  Weight: 121 kg

DRUGS (7)
  1. GLUCOVANCE [Suspect]
     Indication: DIABETES MELLITUS
     Dosage: DOSAGE FORM = 2.5 MG/500 MG
  2. NEURONTIN [Concomitant]
  3. DETROL LA [Concomitant]
  4. ACTOS [Concomitant]
  5. COZAAR [Concomitant]
  6. CALCIUM CHLORIDE [Concomitant]
  7. FISH OIL [Concomitant]

REACTIONS (2)
  - INCORRECT DOSE ADMINISTERED [None]
  - NO ADVERSE REACTION [None]
